FAERS Safety Report 6793117-8 (Version None)
Quarter: 2010Q2

REPORT INFORMATION
  Report Type: 
  Country: None (occurrence: None)
  Receive Date: 20100624
  Receipt Date: 20090602
  Transmission Date: 20101027
  Serious: Yes (Death)
  Sender: FDA-Public Use
  Company Number: US-MYLANLABS-2009S1008903

PATIENT
  Age: 53 Year
  Sex: Male

DRUGS (13)
  1. CLOZAPINE [Suspect]
     Route: 048
     Dates: start: 20060401
  2. CLOZAPINE [Suspect]
     Route: 048
     Dates: start: 20060401
  3. CLOZAPINE [Suspect]
     Route: 048
     Dates: start: 20060401
  4. BENZTROPINE MESYLATE [Concomitant]
     Route: 048
  5. DEPAKOTE ER [Concomitant]
     Route: 048
  6. ZOLOFT [Concomitant]
     Route: 048
  7. CHLORPROMAZINE [Concomitant]
     Dosage: TWO TABLETS BID
     Route: 048
  8. LEVOTHYROXINE [Concomitant]
     Route: 048
  9. ENALAPRIL MALEATE [Concomitant]
     Route: 048
  10. CLONAZEPAM [Concomitant]
     Dosage: 1MG QAM AND 1/2MG QPM
     Route: 048
  11. COLACE [Concomitant]
  12. MIRALAX [Concomitant]
  13. SENOKOT [Concomitant]

REACTIONS (1)
  - DEATH [None]
